FAERS Safety Report 6541188-6 (Version None)
Quarter: 2010Q1

REPORT INFORMATION
  Report Type: 
  Country: None (occurrence: None)
  Receive Date: 20100118
  Receipt Date: 20100112
  Transmission Date: 20100710
  Serious: Yes (Hospitalization)
  Sender: FDA-Public Use
  Company Number: B0624911A

PATIENT
  Sex: Male

DRUGS (6)
  1. AUGMENTIN '125' [Suspect]
     Dosage: 500MG UNKNOWN
     Route: 048
     Dates: start: 20091126, end: 20091204
  2. CLAMOXYL [Suspect]
     Dosage: 1G UNKNOWN
     Route: 048
     Dates: start: 20091127, end: 20091204
  3. EXELON [Suspect]
     Indication: DRUG USE FOR UNKNOWN INDICATION
     Dosage: 4.6MG PER DAY
     Route: 062
     Dates: start: 20091130, end: 20091204
  4. ARANESP [Concomitant]
     Dosage: 20MCG UNKNOWN
     Route: 065
     Dates: start: 20091103
  5. AMLOR [Concomitant]
     Route: 065
     Dates: start: 20091022
  6. CACIT D3 [Concomitant]
     Route: 065

REACTIONS (3)
  - OEDEMA PERIPHERAL [None]
  - PRURITUS [None]
  - RASH MACULO-PAPULAR [None]
